FAERS Safety Report 8067952-2 (Version None)
Quarter: 2012Q1

REPORT INFORMATION
  Report Type: 
  Country: None (occurrence: None)
  Receive Date: 20120124
  Receipt Date: 20110906
  Transmission Date: 20120608
  Serious: No
  Sender: FDA-Public Use
  Company Number: US-AMGEN-USASP2011045345

PATIENT
  Age: 76 Year
  Sex: Female

DRUGS (5)
  1. CALCIUM WITH VITAMIN D             /00944201/ [Concomitant]
  2. PROLIA [Suspect]
     Indication: OSTEOPOROSIS POSTMENOPAUSAL
     Dosage: 60 MG, Q6MO
     Dates: start: 20111101
  3. NORVASC [Concomitant]
  4. VITAMIN E                          /00110501/ [Concomitant]
  5. FOLIC ACID [Concomitant]

REACTIONS (4)
  - DRY SKIN [None]
  - DRUG INEFFECTIVE [None]
  - SKIN EXFOLIATION [None]
  - PAIN IN EXTREMITY [None]
